FAERS Safety Report 12967795 (Version 1)
Quarter: 2016Q4

REPORT INFORMATION
  Report Type: Spontaneous
  Country: US (occurrence: US)
  Receive Date: 20161122
  Receipt Date: 20161122
  Transmission Date: 20170207
  Serious: Yes (Disabling)
  Sender: FDA-Public Use
  Company Number: None

PATIENT
  Age: 45 Year
  Sex: Female
  Weight: 74.25 kg

DRUGS (8)
  1. VITAMIN B SUPPLEMENT [Concomitant]
  2. MULTIVITAMIN FOR WOMEN [Concomitant]
  3. VITAMIN D [Concomitant]
     Active Substance: CHOLECALCIFEROL
  4. CALCIUM [Concomitant]
     Active Substance: CALCIUM
  5. PAXIL [Suspect]
     Active Substance: PAROXETINE HYDROCHLORIDE
     Indication: ADJUSTMENT DISORDER WITH DEPRESSED MOOD
     Dosage: ?          QUANTITY:1 TABLET(S);?
     Route: 048
     Dates: start: 20151106, end: 20160204
  6. PAXIL [Suspect]
     Active Substance: PAROXETINE HYDROCHLORIDE
     Indication: ANXIETY
     Dosage: ?          QUANTITY:1 TABLET(S);?
     Route: 048
     Dates: start: 20151106, end: 20160204
  7. LEVOTHYROXINE. [Concomitant]
     Active Substance: LEVOTHYROXINE
  8. PROBIOTIC [Concomitant]
     Active Substance: PROBIOTICS NOS

REACTIONS (4)
  - Increased appetite [None]
  - Blood thyroid stimulating hormone increased [None]
  - Weight increased [None]
  - Hypothyroidism [None]

NARRATIVE: CASE EVENT DATE: 20151122
